FAERS Safety Report 18999507 (Version 1)
Quarter: 2021Q1

REPORT INFORMATION
  Report Type: Spontaneous
  Country: AU (occurrence: AU)
  Receive Date: 20210311
  Receipt Date: 20210311
  Transmission Date: 20210420
  Serious: Yes (Hospitalization)
  Sender: FDA-Public Use
  Company Number: AU-COLLEGIUM PHARMACEUTICAL, INC.-2021CGM00254

PATIENT
  Age: 51 Year
  Sex: Female

DRUGS (5)
  1. TAPENTADOL [Suspect]
     Active Substance: TAPENTADOL
     Indication: NEURALGIA
     Dosage: 250 MG, 2X/DAY
     Route: 065
  2. PREGABALIN. [Suspect]
     Active Substance: PREGABALIN
     Dosage: 300 MG, 2X/DAY
     Route: 065
  3. PAROXETINE. [Concomitant]
     Active Substance: PAROXETINE
  4. PREGABALIN. [Suspect]
     Active Substance: PREGABALIN
     Indication: NEURALGIA
     Dosage: 75 MG AS NEEDED
  5. INSULIN 2 [Concomitant]

REACTIONS (7)
  - Agitation [Recovered/Resolved]
  - Disorientation [Recovered/Resolved]
  - Epilepsy [Recovered/Resolved]
  - Drug interaction [Unknown]
  - Encephalopathy [Recovered/Resolved]
  - Altered state of consciousness [Recovered/Resolved]
  - Somnolence [Recovered/Resolved]
